FAERS Safety Report 16867183 (Version 1)
Quarter: 2019Q3

REPORT INFORMATION
  Report Type: Spontaneous
  Country: US (occurrence: US)
  Receive Date: 20190930
  Receipt Date: 20190930
  Transmission Date: 20191005
  Serious: Yes (Hospitalization, Other)
  Sender: FDA-Public Use
  Company Number: US-BAYER-2019-173499

PATIENT
  Age: 70 Year
  Sex: Female

DRUGS (1)
  1. ACETYLSALICYLIC ACID (CARDIO) [Suspect]
     Active Substance: ASPIRIN

REACTIONS (8)
  - Intestinal ulcer [None]
  - Cerebral haemorrhage [None]
  - Anaemia [None]
  - Small intestinal haemorrhage [None]
  - Cerebral haematoma [None]
  - Melaena [None]
  - Haemorrhoids [None]
  - Haematochezia [None]
